FAERS Safety Report 7255915-6 (Version None)
Quarter: 2011Q1

REPORT INFORMATION
  Report Type: 
  Country: None (occurrence: None)
  Receive Date: 20110129
  Receipt Date: 20100712
  Transmission Date: 20110831
  Serious: No
  Sender: FDA-Public Use
  Company Number: US-ABBOTT-10P-163-0648426-00

PATIENT
  Sex: Female
  Weight: 59.02 kg

DRUGS (1)
  1. HUMIRA [Suspect]
     Indication: RHEUMATOID ARTHRITIS
     Route: 058
     Dates: start: 20080601, end: 20100614

REACTIONS (4)
  - LYMPHOCYTE MORPHOLOGY ABNORMAL [None]
  - RASH ERYTHEMATOUS [None]
  - RASH GENERALISED [None]
  - PRURITUS [None]
